FAERS Safety Report 7494667-1 (Version None)
Quarter: 2011Q2

REPORT INFORMATION
  Report Type: 
  Country: None (occurrence: None)
  Receive Date: 20110520
  Receipt Date: 20110510
  Transmission Date: 20111010
  Serious: Yes (Life-Threatening, Hospitalization)
  Sender: FDA-Public Use
  Company Number: FR-ABBOTT-10P-056-0642142-00

PATIENT
  Sex: Male
  Weight: 74 kg

DRUGS (7)
  1. IRBESARTAN + HYDROCHLOROTHIAZIDE [Concomitant]
     Indication: HYPERTENSION
     Dates: start: 20040101
  2. OMEPRAZOLE [Concomitant]
     Indication: GASTROINTESTINAL HAEMORRHAGE
     Dates: start: 20040119
  3. LEXOMIL [Concomitant]
     Indication: INSOMNIA
     Dates: start: 20091107
  4. KALETRA [Suspect]
     Indication: HIV INFECTION
     Route: 048
     Dates: start: 20091112
  5. PREVISCAN [Interacting]
     Indication: EMBOLISM
     Dates: start: 20040706
  6. CRESTOR [Concomitant]
     Indication: DYSLIPIDAEMIA
     Route: 048
     Dates: start: 20061213
  7. OMEPRAZOLE [Concomitant]
     Indication: PROPHYLAXIS

REACTIONS (3)
  - GASTROINTESTINAL HAEMORRHAGE [None]
  - HIATUS HERNIA [None]
  - HAEMORRHAGE [None]
